FAERS Safety Report 21851745 (Version 2)
Quarter: 2024Q2

REPORT INFORMATION
  Report Type: Spontaneous
  Country: GB (occurrence: GB)
  Receive Date: 20230112
  Receipt Date: 20240410
  Transmission Date: 20240715
  Serious: Yes (Hospitalization)
  Sender: FDA-Public Use
  Company Number: GB-TEVA-2023-GB-2844755

PATIENT
  Age: 69 Year
  Sex: Female

DRUGS (3)
  1. PREDNISOLONE [Suspect]
     Active Substance: PREDNISOLONE
     Indication: Immunosuppressant drug therapy
     Route: 065
  2. TACROLIMUS [Suspect]
     Active Substance: TACROLIMUS
     Indication: Immunosuppressant drug therapy
     Route: 065
  3. VALGANCICLOVIR [Concomitant]
     Active Substance: VALGANCICLOVIR
     Indication: Epstein-Barr virus infection
     Route: 048

REACTIONS (11)
  - Human herpesvirus 8 infection [Unknown]
  - Lymphadenopathy [Unknown]
  - Pulmonary mass [Unknown]
  - Kaposi^s sarcoma [Unknown]
  - Acute kidney injury [Unknown]
  - Hyponatraemia [Unknown]
  - Cachexia [Unknown]
  - Inflammation [Unknown]
  - Pancytopenia [Unknown]
  - Interstitial lung disease [Unknown]
  - Pleural effusion [Unknown]
